FAERS Safety Report 8286701-6 (Version None)
Quarter: 2012Q2

REPORT INFORMATION
  Report Type: 
  Country: None (occurrence: None)
  Receive Date: 20120416
  Receipt Date: 20120402
  Transmission Date: 20120825
  Serious: Yes (Hospitalization, Other)
  Sender: FDA-Public Use
  Company Number: US-SANOFI-AVENTIS-2012SA023453

PATIENT
  Age: 80 Year
  Sex: Male
  Weight: 70 kg

DRUGS (3)
  1. PLAVIX [Suspect]
     Indication: CORONARY ARTERY BYPASS
     Dates: start: 20080101
  2. PLAVIX [Suspect]
     Indication: STENT PLACEMENT
     Dates: start: 20080101
  3. ASPIRIN [Concomitant]

REACTIONS (3)
  - CARDIAC FAILURE [None]
  - CORONARY ARTERY OCCLUSION [None]
  - DYSPEPSIA [None]
